FAERS Safety Report 10645569 (Version 2)
Quarter: 2014Q4

REPORT INFORMATION
  Report Type: Spontaneous
  Country: US (occurrence: US)
  Receive Date: 20141211
  Receipt Date: 20141211
  Transmission Date: 20150529
  Serious: No
  Sender: FDA-Public Use
  Company Number: US-BAUSCH-SYM-2013-00769

PATIENT
  Age: 66 Year
  Sex: Female

DRUGS (1)
  1. XENAZINE [Suspect]
     Active Substance: TETRABENAZINE
     Indication: BASAL GANGLION DEGENERATION
     Route: 048
     Dates: start: 20120812, end: 20140723

REACTIONS (3)
  - Intentional product use issue [Recovered/Resolved]
  - Adverse drug reaction [Unknown]
  - Disturbance in attention [Unknown]

NARRATIVE: CASE EVENT DATE: 20120812
